FAERS Safety Report 9612646 (Version 1)
Quarter: 2013Q4

REPORT INFORMATION
  Report Type: Spontaneous
  Country: FR (occurrence: FR)
  Receive Date: 20131010
  Receipt Date: 20131010
  Transmission Date: 20140711
  Serious: Yes (Hospitalization)
  Sender: FDA-Public Use
  Company Number: FR-PFIZER INC-2013285816

PATIENT
  Age: 76 Year
  Sex: Female

DRUGS (2)
  1. ZYVOXID [Suspect]
     Indication: INFECTION
     Dosage: 600 MG, 2X/DAY
     Route: 048
     Dates: start: 20130522, end: 20130608
  2. VANCOMYCIN MYLAN [Suspect]
     Indication: INFECTION
     Dosage: UNK
     Dates: start: 20130522, end: 20130608

REACTIONS (2)
  - Thrombocytopenia [Recovered/Resolved]
  - Renal failure acute [Recovered/Resolved]
